FAERS Safety Report 13840941 (Version 2)
Quarter: 2017Q4

REPORT INFORMATION
  Report Type: Spontaneous
  Country: IT (occurrence: IT)
  Receive Date: 20170807
  Receipt Date: 20171109
  Transmission Date: 20180320
  Serious: Yes (Hospitalization)
  Sender: FDA-Public Use
  Company Number: IT-SA-2017SA141031

PATIENT
  Age: 76 Year
  Sex: Female

DRUGS (15)
  1. TICAGRELOR. [Concomitant]
     Active Substance: TICAGRELOR
     Route: 048
  2. CARDIOASPIRIN [Concomitant]
     Active Substance: ASPIRIN
     Dosage: 100 MG GASTRORESISTENT TABLET
     Route: 048
  3. ATENOLOL. [Concomitant]
     Active Substance: ATENOLOL
     Route: 048
  4. INSULIN GLARGINE [Concomitant]
     Active Substance: INSULIN GLARGINE
     Route: 058
  5. ROSUVASTATIN CALCIUM. [Concomitant]
     Active Substance: ROSUVASTATIN CALCIUM
     Route: 048
  6. TRAZODONE [Concomitant]
     Active Substance: TRAZODONE HYDROCHLORIDE
     Route: 048
  7. COLCHICINE. [Concomitant]
     Active Substance: COLCHICINE
     Indication: GOUT
     Route: 048
     Dates: start: 20170510, end: 20170629
  8. LUVION (CANRENOIC ACID) [Interacting]
     Active Substance: CANRENOIC ACID
     Route: 048
  9. LUVION (CANRENOIC ACID) [Interacting]
     Active Substance: CANRENOIC ACID
     Route: 048
  10. EUTIROX [Concomitant]
     Active Substance: LEVOTHYROXINE SODIUM
     Indication: HYPOTHYROIDISM
     Dosage: 75 MG TABLET
     Route: 048
  11. AMLODIPINE [Concomitant]
     Active Substance: AMLODIPINE BESYLATE
     Route: 048
  12. INSULIN GLULISINE [Concomitant]
     Active Substance: INSULIN GLULISINE
     Route: 058
  13. IRBESARTAN. [Suspect]
     Active Substance: IRBESARTAN
     Indication: HYPERTENSION
     Route: 048
     Dates: start: 20170615, end: 20170703
  14. BRUFEN [Concomitant]
     Active Substance: IBUPROFEN
     Indication: GOUT
     Dosage: 600 MG EFFERVESCENT GRANULES
     Route: 048
     Dates: start: 20170510, end: 20170629
  15. LASIX [Interacting]
     Active Substance: FUROSEMIDE
     Indication: HYPERTENSION
     Route: 048
     Dates: start: 20170615, end: 20170703

REACTIONS (4)
  - Metabolic acidosis [Recovering/Resolving]
  - Dehydration [Recovering/Resolving]
  - Drug interaction [Unknown]
  - Acute kidney injury [Recovering/Resolving]

NARRATIVE: CASE EVENT DATE: 20170703
